FAERS Safety Report 14354729 (Version 3)
Quarter: 2018Q1

REPORT INFORMATION
  Report Type: Spontaneous
  Country: DE (occurrence: DE)
  Receive Date: 20180105
  Receipt Date: 20180317
  Transmission Date: 20180509
  Serious: Yes (Life-Threatening, Hospitalization, Other)
  Sender: FDA-Public Use
  Company Number: DE-AUROBINDO-AUR-APL-2018-000260

PATIENT
  Age: 44 Year
  Sex: Male

DRUGS (9)
  1. ALLOPURINOL. [Suspect]
     Active Substance: ALLOPURINOL
     Indication: HYPERURICAEMIA
     Dosage: UNK UNK, AS NECESSARY
     Route: 048
  2. ETORICOXIB [Suspect]
     Active Substance: ETORICOXIB
     Dosage: LONG-TERM THERAPY ()
     Route: 048
  3. ALLOPURINOL. [Suspect]
     Active Substance: ALLOPURINOL
     Dosage: ()
     Route: 048
  4. IBUPROFEN. [Suspect]
     Active Substance: IBUPROFEN
     Dosage: UNK ()
  5. ALLOPURINOL. [Suspect]
     Active Substance: ALLOPURINOL
     Indication: ARTHRALGIA
     Dosage: ()
  6. IBUPROFEN. [Suspect]
     Active Substance: IBUPROFEN
     Dosage: UNK, PRN (1) ; AS NECESSARY
     Route: 048
  7. IBUPROFEN. [Suspect]
     Active Substance: IBUPROFEN
     Indication: ARTHRALGIA
     Dosage: 1 UNK, AS NECESSARY
     Route: 048
  8. ETORICOXIB [Suspect]
     Active Substance: ETORICOXIB
     Indication: ARTHRALGIA
     Dosage: UNK
     Route: 048
  9. ETORICOXIB [Suspect]
     Active Substance: ETORICOXIB
     Dosage: ()
     Route: 048

REACTIONS (23)
  - Conjunctivitis [Recovered/Resolved]
  - Coating in mouth [Recovered/Resolved]
  - Enterococcal infection [Recovered/Resolved]
  - Toxic epidermal necrolysis [Recovering/Resolving]
  - Skin hyperpigmentation [Recovered/Resolved]
  - Blister [Recovered/Resolved]
  - Dehydration [Recovered/Resolved]
  - Mucosal erosion [Recovering/Resolving]
  - Intensive care unit acquired weakness [Recovered/Resolved]
  - Pruritus [Recovered/Resolved]
  - Scab [Recovered/Resolved]
  - Skin exfoliation [Recovered/Resolved]
  - Prerenal failure [Recovered/Resolved]
  - Respiratory fatigue [Recovered/Resolved]
  - Renal failure [Recovered/Resolved]
  - Erythema [Recovered/Resolved]
  - Mucosal necrosis [Recovered/Resolved]
  - Staphylococcal infection [Recovered/Resolved]
  - Oral mucosa erosion [Recovered/Resolved]
  - Lip erosion [Recovered/Resolved]
  - Dysphagia [Recovered/Resolved]
  - Pain [Recovered/Resolved]
  - Rash generalised [Recovered/Resolved]
